FAERS Safety Report 9699947 (Version 1)
Quarter: 2013Q4

REPORT INFORMATION
  Report Type: Spontaneous
  Country: US (occurrence: US)
  Receive Date: 20131121
  Receipt Date: 20131121
  Transmission Date: 20140711
  Serious: No
  Sender: FDA-Public Use
  Company Number: US-009507513-1311USA005407

PATIENT
  Sex: Female
  Weight: 124.72 kg

DRUGS (3)
  1. NEXPLANON [Suspect]
     Indication: CONTRACEPTION
     Dosage: 3 YEAR IMPLANT; IN LEFT ARM
     Route: 059
     Dates: start: 20130815
  2. OMEPRAZOLE [Concomitant]
     Indication: DYSPEPSIA
  3. INFLUENZA VIRUS VACCINE (UNSPECIFIED) [Concomitant]
     Dosage: UNK
     Dates: start: 20131102

REACTIONS (1)
  - Menstruation delayed [Recovered/Resolved]
